FAERS Safety Report 10903999 (Version 1)
Quarter: 2015Q1

REPORT INFORMATION
  Report Type: Spontaneous
  Country: US (occurrence: None)
  Receive Date: 20150306
  Receipt Date: 20150306
  Transmission Date: 20150721
  Serious: Yes (Other)
  Sender: FDA-Public Use
  Company Number: COL_19230_2015

PATIENT
  Age: 55 Year
  Sex: Female

DRUGS (1)
  1. COLGATE TOTAL FRESHMINT [Suspect]
     Active Substance: CETYLPYRIDINIUM CHLORIDE
     Indication: PRODUCT USED FOR UNKNOWN INDICATION
     Dosage: (POURED A LITTLE IN HER MOUTH SWISHED AND EXPECTORATED ORAL)
     Route: 048
     Dates: start: 20150214, end: 20150214

REACTIONS (6)
  - Gingival swelling [None]
  - Swelling face [None]
  - Mouth swelling [None]
  - Pharyngeal oedema [None]
  - Lip swelling [None]
  - Swollen tongue [None]

NARRATIVE: CASE EVENT DATE: 20150214
